FAERS Safety Report 4383830-4 (Version None)
Quarter: 2004Q2

REPORT INFORMATION
  Report Type: 
  Country: None (occurrence: None)
  Receive Date: 20040608
  Receipt Date: 20030902
  Transmission Date: 20050107
  Serious: Yes (Other)
  Sender: FDA-Public Use
  Company Number: 200313086BCC

PATIENT
  Age: 67 Year
  Sex: Female
  Weight: 63.5036 kg

DRUGS (7)
  1. ALEVE [Suspect]
     Indication: BACK PAIN
     Dosage: 440 MG, BID, ORAL
     Route: 048
     Dates: start: 20030701, end: 20030901
  2. NEXIUM [Concomitant]
  3. LOTENSIN [Concomitant]
  4. LIPITOR [Concomitant]
  5. AMBIEN [Concomitant]
  6. ASPIRIN [Concomitant]
  7. PLAVIX [Concomitant]

REACTIONS (2)
  - BLOOD VISCOSITY INCREASED [None]
  - PLATELET COUNT DECREASED [None]
